FAERS Safety Report 24109295 (Version 4)
Quarter: 2024Q4

REPORT INFORMATION
  Report Type: Spontaneous
  Country: IT (occurrence: IT)
  Receive Date: 20240718
  Receipt Date: 20241111
  Transmission Date: 20250115
  Serious: Yes (Death, Other)
  Sender: BRACCO
  Company Number: None

PATIENT
  Age: 77 Year
  Sex: Male

DRUGS (1)
  1. IOPAMIRO [Suspect]
     Active Substance: IOPAMIDOL
     Indication: Computerised tomogram head
     Dosage: 370 MG/ML 500 ML BOTTLE, WITH A FLOW RATE OF 3.5 ML/S
     Route: 042
     Dates: start: 20240701, end: 20240701

REACTIONS (2)
  - Cardiac arrest [Fatal]
  - Malaise [Fatal]

NARRATIVE: CASE EVENT DATE: 20240701
